FAERS Safety Report 23195249 (Version 1)
Quarter: 2023Q4

REPORT INFORMATION
  Report Type: Spontaneous
  Country: US (occurrence: US)
  Receive Date: 20231117
  Receipt Date: 20231117
  Transmission Date: 20240110
  Serious: Yes (Hospitalization, Other)
  Sender: FDA-Public Use
  Company Number: US-ALKEM LABORATORIES LIMITED-US-ALKEM-2023-11951

PATIENT
  Age: 29 Year
  Sex: Female

DRUGS (8)
  1. CLOZAPINE [Suspect]
     Active Substance: CLOZAPINE
     Indication: Brief psychotic disorder, with postpartum onset
     Dosage: 100 MILLIGRAM, BID (TWICE A DAY)
     Route: 065
  2. CLOZAPINE [Suspect]
     Active Substance: CLOZAPINE
     Dosage: 300 MG/DAY
     Route: 065
  3. OLANZAPINE [Suspect]
     Active Substance: OLANZAPINE
     Indication: Brief psychotic disorder, with postpartum onset
     Dosage: UNK
     Route: 065
  4. AMISULPRIDE [Suspect]
     Active Substance: AMISULPRIDE
     Indication: Brief psychotic disorder, with postpartum onset
     Dosage: 100 MG/DAY
     Route: 065
  5. AMISULPRIDE [Suspect]
     Active Substance: AMISULPRIDE
     Dosage: 1000 MG/DAY (TITRATED DOSE)
     Route: 065
  6. FLUPENTIXOL [Suspect]
     Active Substance: FLUPENTIXOL
     Indication: Brief psychotic disorder, with postpartum onset
     Dosage: 20 MILLIGRAM (PER MONTH)
     Route: 065
  7. RISPERIDONE [Suspect]
     Active Substance: RISPERIDONE
     Indication: Brief psychotic disorder, with postpartum onset
     Dosage: 2 MG/DAY
     Route: 065
  8. RISPERIDONE [Suspect]
     Active Substance: RISPERIDONE
     Dosage: 1 MG/DAY (TAPERED DOSE)
     Route: 065

REACTIONS (5)
  - Pancreatitis acute [Recovered/Resolved]
  - Hepatitis [Recovered/Resolved]
  - C-reactive protein increased [Recovering/Resolving]
  - Troponin T increased [Recovering/Resolving]
  - Therapy partial responder [Unknown]
